FAERS Safety Report 4391136-2 (Version None)
Quarter: 2004Q2

REPORT INFORMATION
  Report Type: 
  Country: None (occurrence: None)
  Receive Date: 20040621
  Receipt Date: 20031029
  Transmission Date: 20050107
  Serious: Yes (Death, Other)
  Sender: FDA-Public Use
  Company Number: USA-2003-0009804

PATIENT
  Age: 19 Year
  Sex: Male

DRUGS (3)
  1. OXYCONTIN [Suspect]
     Dosage: 40 MG, NASAL
     Route: 045
  2. CITALOPRAM (CITALOPRAM) [Suspect]
  3. ALCOHOL (ETHANOL) [Suspect]

REACTIONS (2)
  - DRUG ABUSER [None]
  - MULTIPLE DRUG OVERDOSE [None]
